FAERS Safety Report 5441540-6 (Version None)
Quarter: 2007Q3

REPORT INFORMATION
  Report Type: 
  Country: None (occurrence: None)
  Receive Date: 20070904
  Receipt Date: 20070830
  Transmission Date: 20080115
  Serious: Yes (Life-Threatening, Other)
  Sender: FDA-Public Use
  Company Number: NZ-BRISTOL-MYERS SQUIBB COMPANY-13836416

PATIENT
  Age: 24 Hour
  Sex: Male
  Weight: 2 kg

DRUGS (3)
  1. TAXOL [Suspect]
     Route: 064
     Dates: start: 20060801, end: 20061031
  2. HERCEPTIN [Concomitant]
     Route: 064
  3. TAMOXIFEN CITRATE [Concomitant]
     Route: 064

REACTIONS (6)
  - DRUG EXPOSURE DURING PREGNANCY [None]
  - FOETAL GROWTH RETARDATION [None]
  - PNEUMOMEDIASTINUM [None]
  - PREMATURE BABY [None]
  - RENAL FAILURE [None]
  - RESPIRATORY DISTRESS [None]
